FAERS Safety Report 25864199 (Version 1)
Quarter: 2025Q3

REPORT INFORMATION
  Report Type: Spontaneous
  Country: EU (occurrence: EU)
  Receive Date: 20250930
  Receipt Date: 20250930
  Transmission Date: 20251020
  Serious: Yes (Hospitalization)
  Sender: NOVARTIS
  Company Number: None

PATIENT
  Age: 15 Year
  Sex: Male
  Weight: 51.2 kg

DRUGS (3)
  1. ALPELISIB [Suspect]
     Active Substance: ALPELISIB
     Indication: Proteus syndrome
     Dosage: 125 MG, QD
     Route: 048
     Dates: start: 20241007, end: 20250513
  2. ALPELISIB [Suspect]
     Active Substance: ALPELISIB
     Dosage: 125 MG, QD
     Route: 048
     Dates: start: 20250710, end: 20250822
  3. PROPRANOLOL [Concomitant]
     Active Substance: PROPRANOLOL HYDROCHLORIDE
     Indication: Product used for unknown indication
     Route: 065

REACTIONS (1)
  - Skin ulcer [Recovering/Resolving]

NARRATIVE: CASE EVENT DATE: 20250301
